FAERS Safety Report 16721233 (Version 1)
Quarter: 2019Q3

REPORT INFORMATION
  Report Type: Spontaneous
  Country: VN (occurrence: VN)
  Receive Date: 20190820
  Receipt Date: 20190820
  Transmission Date: 20191005
  Serious: Yes (Other)
  Sender: FDA-Public Use
  Company Number: VN-BAYER-2019-038366

PATIENT
  Sex: Male

DRUGS (1)
  1. ULTRAVIST [Suspect]
     Active Substance: IOPROMIDE
     Indication: COMPUTERISED TOMOGRAM ABDOMEN
     Dosage: 65 ML
     Route: 042
     Dates: start: 20190116

REACTIONS (3)
  - Abdominal pain upper [None]
  - Hypoaesthesia [None]
  - Pulse abnormal [None]

NARRATIVE: CASE EVENT DATE: 20190116
